FAERS Safety Report 4898467-8 (Version None)
Quarter: 2006Q1

REPORT INFORMATION
  Report Type: 
  Country: None (occurrence: None)
  Receive Date: 20060131
  Receipt Date: 20060131
  Transmission Date: 20060701
  Serious: Yes (Death, Hospitalization)
  Sender: FDA-Public Use
  Company Number: None

PATIENT
  Sex: Male
  Weight: 35 kg

DRUGS (4)
  1. CYCLOPHOSPHAMIDE [Suspect]
     Indication: LYMPHOPROLIFERATIVE DISORDER
     Dosage: 708 MG
     Dates: start: 20060115, end: 20060115
  2. CYCLOPHOSPHAMIDE [Suspect]
     Indication: LYMPHOPROLIFERATIVE DISORDER
     Dosage: 708 MG
     Dates: start: 20051223
  3. METHYLPREDNISOLONE [Suspect]
     Dosage: 216 MG
     Dates: start: 20060113, end: 20060117
  4. METHYLPREDNISOLONE [Suspect]
     Dosage: 216 MG
     Dates: start: 20051223

REACTIONS (15)
  - ABDOMINAL PAIN [None]
  - ANAEMIA [None]
  - CHEST X-RAY ABNORMAL [None]
  - COUGH [None]
  - GAIT DISTURBANCE [None]
  - HAEMATOCHEZIA [None]
  - HAEMORRHAGE [None]
  - HEADACHE [None]
  - HYPOTENSION [None]
  - HYPOXIA [None]
  - LOSS OF CONSCIOUSNESS [None]
  - LYMPHOPROLIFERATIVE DISORDER [None]
  - MENTAL STATUS CHANGES [None]
  - OXYGEN SATURATION DECREASED [None]
  - TACHYCARDIA [None]
